FAERS Safety Report 8883658 (Version 2)
Quarter: 2013Q1

REPORT INFORMATION
  Report Type: Spontaneous
  Country: US (occurrence: US)
  Receive Date: 20121102
  Receipt Date: 20130204
  Transmission Date: 20140127
  Serious: Yes (Other)
  Sender: FDA-Public Use
  Company Number: US-BAYER-2012-114495

PATIENT
  Age: 45 Year
  Sex: Female
  Weight: 63.49 kg

DRUGS (2)
  1. YAZ [Suspect]
     Indication: PREMENSTRUAL SYNDROME
     Dosage: UNK
     Dates: start: 20100728, end: 20101014
  2. YAZ [Suspect]
     Indication: MENSTRUATION IRREGULAR

REACTIONS (17)
  - Thrombosis [None]
  - Cerebrovascular accident [None]
  - Deep vein thrombosis [None]
  - Pain [None]
  - Anxiety [None]
  - Deformity [None]
  - General physical health deterioration [None]
  - Injury [None]
  - Pain [None]
  - Mental impairment [None]
  - Hemiplegia [None]
  - VIIth nerve paralysis [None]
  - Abasia [None]
  - Gait disturbance [None]
  - Malaise [None]
  - Nausea [None]
  - Fall [None]
